FAERS Safety Report 8416444-7 (Version None)
Quarter: 2012Q2

REPORT INFORMATION
  Report Type: 
  Country: None (occurrence: None)
  Receive Date: 20120606
  Receipt Date: 20120601
  Transmission Date: 20120825
  Serious: Yes (Hospitalization)
  Sender: FDA-Public Use
  Company Number: AU-ROCHE-1068050

PATIENT
  Age: 73 Year
  Sex: Male
  Weight: 86.7 kg

DRUGS (15)
  1. VERAPAMIL HCL [Concomitant]
     Dates: start: 19710101, end: 20120430
  2. VEMURAFENIB [Suspect]
     Route: 048
     Dates: start: 20120312
  3. VEMURAFENIB [Suspect]
     Indication: MALIGNANT MELANOMA
     Route: 048
     Dates: start: 20111110
  4. VEMURAFENIB [Suspect]
     Route: 048
     Dates: start: 20120105
  5. MICARDIS [Concomitant]
     Dates: start: 19710101, end: 20120430
  6. OMEPRAZOLE [Concomitant]
     Dates: start: 20111123
  7. METOCLOPRAMIDE [Concomitant]
     Dates: start: 20111117
  8. VEMURAFENIB [Suspect]
     Dates: end: 20120508
  9. PRESSIN [Concomitant]
     Dates: start: 19710101, end: 20120430
  10. LACTULOSE [Concomitant]
     Dates: start: 20111110
  11. NYSTATIN LOZENGE [Concomitant]
     Dates: start: 20111208
  12. OXYCONTIN [Concomitant]
     Dates: start: 20111204
  13. COLOXYL + SENNA [Concomitant]
     Dates: start: 20111110
  14. PROCHLORPERAZINE [Concomitant]
     Dates: start: 20111208
  15. FLUCONAZOLE [Concomitant]
     Dates: start: 20120207

REACTIONS (2)
  - BLOOD CREATININE INCREASED [None]
  - HYPOTENSION [None]
